FAERS Safety Report 8709822 (Version 2)
Quarter: 2012Q4

REPORT INFORMATION
  Report Type: 
  Country: US (occurrence: US)
  Receive Date: 20120806
  Receipt Date: 20121017
  Transmission Date: 20130627
  Serious: Yes (Hospitalization, Disabling, Other)
  Sender: FDA-Public Use
  Company Number: US-ASTRAZENECA-2012SE53738

PATIENT
  Age: 60 Year
  Sex: Female
  Weight: 67.1 kg

DRUGS (21)
  1. ARIMIDEX [Suspect]
     Route: 048
     Dates: start: 20080206, end: 200805
  2. ARIMIDEX [Suspect]
     Route: 048
  3. FASLODEX [Suspect]
     Route: 030
  4. TOPROL XL [Suspect]
     Route: 048
  5. ALPRAZOLAM [Concomitant]
  6. AMBIEN [Concomitant]
  7. ASPIRIN [Concomitant]
     Dosage: DELAYED RELEASE
  8. CALTRATE [Concomitant]
     Dosage: 600 MG (1500 MG)
  9. COUMADIN [Concomitant]
  10. DIGOXIN [Concomitant]
  11. LANTUS [Concomitant]
     Dosage: 100 UNITS/ML
     Route: 058
  12. NITROSTAT [Concomitant]
     Route: 060
  13. NORVASC [Concomitant]
  14. PLAVIX [Concomitant]
  15. PRAVASTATIN [Concomitant]
  16. PROTONIX [Concomitant]
  17. QUESTRAN LIGHT [Concomitant]
  18. RANEXA [Concomitant]
  19. SYNTHROID [Concomitant]
  20. TRICOR [Concomitant]
  21. VITAMIN D [Concomitant]
     Dosage: 2000 UNIT

REACTIONS (23)
  - Breast cancer recurrent [Unknown]
  - Coronary artery disease [Unknown]
  - Venous injury [Unknown]
  - Pulmonary embolism [Unknown]
  - Malaise [Unknown]
  - Dyspnoea [Unknown]
  - Dyspnoea exertional [Unknown]
  - Polyuria [Unknown]
  - Nervousness [Unknown]
  - Stress [Unknown]
  - Depressed mood [Unknown]
  - Nipple oedema [Unknown]
  - Cellulitis [Unknown]
  - Arrhythmia [Unknown]
  - Anxiety [Unknown]
  - Depression [Unknown]
  - Hyperlipidaemia [Unknown]
  - Gastrooesophageal reflux disease [Unknown]
  - Hypothyroidism [Unknown]
  - Osteoporosis [Unknown]
  - Fatigue [Unknown]
  - Erythema [Unknown]
  - Intentional drug misuse [Unknown]
